FAERS Safety Report 13663709 (Version 3)
Quarter: 2019Q1

REPORT INFORMATION
  Report Type: Spontaneous
  Country: FR (occurrence: FR)
  Receive Date: 20170619
  Receipt Date: 20190219
  Transmission Date: 20190417
  Serious: Yes (Other)
  Sender: FDA-Public Use
  Company Number: FR-ACCORD-052638

PATIENT
  Age: 20 Year
  Sex: Female

DRUGS (2)
  1. ARIPIPRAZOLE. [Suspect]
     Active Substance: ARIPIPRAZOLE
     Indication: AUTISM SPECTRUM DISORDER
     Dosage: INTRODUCTION AT 10 MG/D
  2. RISPERIDONE. [Interacting]
     Active Substance: RISPERIDONE
     Indication: AUTISM SPECTRUM DISORDER

REACTIONS (7)
  - Scar [Unknown]
  - Agitation [Recovered/Resolved]
  - Aggression [Recovered/Resolved]
  - Anxiety [Unknown]
  - Drug interaction [Unknown]
  - Paradoxical drug reaction [Recovered/Resolved]
  - Intentional self-injury [Recovered/Resolved]
